FAERS Safety Report 4325535-1 (Version None)
Quarter: 2004Q1

REPORT INFORMATION
  Report Type: 
  Country: None (occurrence: None)
  Receive Date: 20040323
  Receipt Date: 20040312
  Transmission Date: 20041129
  Serious: Yes (Hospitalization)
  Sender: FDA-Public Use
  Company Number: 2004202421CA

PATIENT
  Age: 31 Year
  Sex: Female
  Weight: 82.4 kg

DRUGS (3)
  1. FRAGMIN [Suspect]
     Indication: BREAST CANCER
     Dosage: 5000 U, QD, SUBCUTANEOUS
     Route: 058
     Dates: start: 20040127, end: 20040131
  2. CYCLOPHOSPHAMIDE [Suspect]
     Indication: BREAST CANCER
     Dosage: 50 MG, QD, ORAL
     Route: 048
     Dates: start: 20040127, end: 20040131
  3. METHOTREXATE [Suspect]
     Indication: BREAST CANCER
     Dosage: 2.5 MG, CYCLIC, ORAL
     Route: 048
     Dates: start: 20040127, end: 20040131

REACTIONS (6)
  - ABDOMINAL PAIN [None]
  - ANAEMIA [None]
  - NAUSEA [None]
  - RENAL FAILURE [None]
  - URETERIC OBSTRUCTION [None]
  - VOMITING [None]
